FAERS Safety Report 7201628-6 (Version None)
Quarter: 2010Q4

REPORT INFORMATION
  Report Type: 
  Country: None (occurrence: None)
  Receive Date: 20101229
  Receipt Date: 20101221
  Transmission Date: 20110411
  Serious: Yes (Other)
  Sender: FDA-Public Use
  Company Number: MA-ROCHE-711831

PATIENT
  Sex: Female
  Weight: 100 kg

DRUGS (4)
  1. TOCILIZUMAB [Suspect]
     Indication: RHEUMATOID ARTHRITIS
     Dosage: 8 MG/KG, UNITS: 40 ML, FORM: INFUSION; LAST DOSE PRIOR TO SAE: 20 MAY 2010.
     Route: 042
     Dates: start: 20100520, end: 20100625
  2. ISONIAZID [Concomitant]
     Dates: start: 20090401, end: 20090901
  3. DIAMICRON [Concomitant]
  4. PREDNISONE [Concomitant]

REACTIONS (1)
  - CYTOLYTIC HEPATITIS [None]
